FAERS Safety Report 6485477-2 (Version None)
Quarter: 2009Q4

REPORT INFORMATION
  Report Type: 
  Country: None (occurrence: None)
  Receive Date: 20091209
  Receipt Date: 20090626
  Transmission Date: 20100525
  Serious: No
  Sender: FDA-Public Use
  Company Number: US-AMGEN-KDL353586

PATIENT
  Sex: Male

DRUGS (1)
  1. ENBREL [Suspect]
     Indication: PSORIASIS
     Route: 058
     Dates: start: 20090308

REACTIONS (5)
  - ERYTHEMA [None]
  - INJURY [None]
  - LIVER FUNCTION TEST ABNORMAL [None]
  - OPEN WOUND [None]
  - PSORIASIS [None]
